FAERS Safety Report 6413398 (Version 20)
Quarter: 2014Q2

REPORT INFORMATION
  Report Type: Spontaneous
  Country: US (occurrence: US)
  Receive Date: 20070914
  Receipt Date: 20140625
  Transmission Date: 20141212
  Serious: Yes (Death, Hospitalization, Other)
  Sender: FDA-Public Use
  Company Number: PHEH2007US12177

PATIENT
  Age: 60 Year
  Sex: Male
  Weight: 113.38 kg

DRUGS (53)
  1. ZOMETA [Suspect]
     Indication: PLASMA CELL MYELOMA
     Dosage: 4 MG, QMO
     Route: 042
     Dates: start: 200510
  2. ZOMETA [Suspect]
     Dates: end: 20080115
  3. ANTINEOPLASTIC AGENTS [Concomitant]
     Dates: end: 200601
  4. AMOXICILLIN [Concomitant]
     Dosage: 500 MG, UNK
     Dates: start: 200711
  5. THALIDOMIDE [Concomitant]
     Dosage: 200 MG, QD
     Dates: start: 20050128
  6. VICODIN ES [Concomitant]
     Dates: start: 2007
  7. DEXAMETHASONE [Concomitant]
     Route: 048
     Dates: start: 2005
  8. LOVENOX [Concomitant]
     Dosage: 40 MG, QD
     Route: 058
  9. CHLORHEXIDINE [Concomitant]
     Dates: start: 20061214
  10. PEN-VEE-K [Concomitant]
     Dates: start: 200004
  11. VICODIN [Concomitant]
     Dates: start: 20061214
  12. HYDROCODONE [Concomitant]
  13. IBUPROFEN [Concomitant]
  14. HERBAL EXTRACTS NOS [Concomitant]
  15. WARFARIN [Concomitant]
     Dates: start: 200608
  16. AMICAR [Concomitant]
     Dates: start: 200701
  17. HYDROCODONE W/APAP [Concomitant]
  18. METRONIDAZOLE [Concomitant]
     Dates: start: 200709
  19. TYLENOL [Concomitant]
     Route: 048
  20. LEVAQUIN [Concomitant]
     Route: 042
  21. VELCADE [Concomitant]
     Route: 042
  22. MULTIVITAMINS [Concomitant]
  23. AMPICILLIN [Concomitant]
  24. PEPCID [Concomitant]
  25. REGLAN                                  /USA/ [Concomitant]
  26. GENTAMYCIN-MP [Concomitant]
  27. DECADRON                                /CAN/ [Concomitant]
  28. COUMADIN ^BOOTS^ [Concomitant]
  29. REVLIMID [Concomitant]
  30. REVLIMID [Concomitant]
  31. PREDNISONE [Concomitant]
  32. PENICILLIN ^GRUNENTHAL^ [Concomitant]
  33. FLAGYL [Concomitant]
  34. ADVAIR DISKUS [Concomitant]
  35. AUGMENTIN [Concomitant]
  36. MOTRIN [Concomitant]
     Dates: start: 200401
  37. FLEXERIL [Concomitant]
     Dates: start: 200401
  38. LORTAB [Concomitant]
     Indication: PAIN
  39. DURAGESIC [Concomitant]
  40. ALKERAN [Concomitant]
  41. ALLOPURINOL [Concomitant]
  42. DILAUDID [Concomitant]
     Indication: PAIN
  43. PHENTOLAMINE [Concomitant]
  44. BABY ASPIRIN [Concomitant]
     Indication: PROPHYLAXIS
  45. COREG [Concomitant]
     Route: 048
  46. COZAAR [Concomitant]
     Dosage: 500 MG, QD
     Route: 048
  47. PREVACID [Concomitant]
     Dosage: 300 MG, QD
     Route: 048
  48. MECLIZINE [Concomitant]
     Dosage: 25 MG, TID
     Route: 048
  49. LIPITOR                                 /NET/ [Concomitant]
     Dosage: 20 MG, TID
     Route: 048
  50. ISOSORBIDE [Concomitant]
     Dosage: 60 MG, QD
     Route: 048
  51. PLAVIX [Concomitant]
     Dosage: 75 MG, QD
     Route: 048
  52. FLUOGEN [Concomitant]
  53. PNEUMOVAX [Concomitant]

REACTIONS (90)
  - Non-small cell lung cancer metastatic [Fatal]
  - Tumour invasion [Fatal]
  - Pulmonary haemorrhage [Fatal]
  - Aspiration [Fatal]
  - Total lung capacity decreased [Fatal]
  - Lymphadenopathy [Fatal]
  - Atelectasis [Fatal]
  - Cough [Fatal]
  - Hypotension [Fatal]
  - Haemoptysis [Fatal]
  - Pyrexia [Fatal]
  - Chest X-ray abnormal [Fatal]
  - Lung infiltration [Fatal]
  - Pleural effusion [Fatal]
  - Pneumonia [Recovered/Resolved]
  - Myocardial infarction [Unknown]
  - Emphysema [Unknown]
  - Pneumoconiosis [Unknown]
  - Coronary artery disease [Unknown]
  - Cardiomegaly [Unknown]
  - Ventricular hypertrophy [Unknown]
  - Carotid artery disease [Unknown]
  - Medical device complication [Unknown]
  - Cerebral infarction [Unknown]
  - Cerebral haemorrhage [Unknown]
  - Renal atrophy [Unknown]
  - Renal cyst [Unknown]
  - Monoclonal gammopathy [Unknown]
  - Aortic arteriosclerosis [Unknown]
  - Intervertebral disc protrusion [Unknown]
  - Nephrolithiasis [Unknown]
  - Hydronephrosis [Unknown]
  - Osteopenia [Unknown]
  - Osteonecrosis of jaw [Unknown]
  - Bone disorder [Unknown]
  - Oral cavity fistula [Unknown]
  - Periodontal disease [Unknown]
  - Dental alveolar anomaly [Unknown]
  - Loose tooth [Unknown]
  - Bone lesion [Unknown]
  - Pain [Unknown]
  - Discomfort [Unknown]
  - Deformity [Unknown]
  - Hypophagia [Unknown]
  - Emotional distress [Unknown]
  - Anxiety [Unknown]
  - Primary sequestrum [Unknown]
  - Life expectancy shortened [Unknown]
  - Gingival ulceration [Unknown]
  - Injury [Unknown]
  - Abscess jaw [Unknown]
  - Anhedonia [Unknown]
  - Osteonecrosis [Unknown]
  - Swelling face [Unknown]
  - Arthralgia [Unknown]
  - Weight decreased [Unknown]
  - Peripheral swelling [Unknown]
  - Periodontitis [Unknown]
  - Plasma cell myeloma [Unknown]
  - Calculus urethral [Unknown]
  - Benign prostatic hyperplasia [Unknown]
  - Left atrial dilatation [Unknown]
  - Spinal osteoarthritis [Unknown]
  - Haematuria [Unknown]
  - Anaemia [Unknown]
  - Back disorder [Unknown]
  - Rash [Unknown]
  - Osteoarthritis [Unknown]
  - Papilloma [Unknown]
  - Spinal compression fracture [Unknown]
  - Sinus tachycardia [Unknown]
  - Prostate examination abnormal [Unknown]
  - Metastases to bone [Unknown]
  - Back pain [Unknown]
  - Chest pain [Unknown]
  - Upper respiratory tract infection [Unknown]
  - Rhinorrhoea [Unknown]
  - Neuropathy peripheral [Unknown]
  - Impaired healing [Unknown]
  - Cellulitis [Unknown]
  - Prostatic dysplasia [Unknown]
  - Lung disorder [Unknown]
  - Fall [Unknown]
  - Ligament sprain [Unknown]
  - Muscle spasms [Unknown]
  - Gastroenteritis [Unknown]
  - Abdominal pain [Unknown]
  - Nausea [Unknown]
  - Lung infection [Unknown]
  - Gynaecomastia [Unknown]
